FAERS Safety Report 18847679 (Version 1)
Quarter: 2021Q1

REPORT INFORMATION
  Report Type: Spontaneous
  Country: SI (occurrence: SI)
  Receive Date: 20210204
  Receipt Date: 20210204
  Transmission Date: 20210419
  Serious: Yes (Other)
  Sender: FDA-Public Use
  Company Number: SI-ACCORD-216219

PATIENT
  Age: 75 Year
  Sex: Male

DRUGS (6)
  1. IRINOTECAN ACCORD [Suspect]
     Active Substance: IRINOTECAN
     Indication: CHOLANGIOCARCINOMA
     Dosage: STRENGTH: 20 MG / ML,180 MG/M2, 400 MG I.V.
     Route: 042
     Dates: start: 20201022, end: 20201231
  2. REGLAN [Concomitant]
     Active Substance: METOCLOPRAMIDE HYDROCHLORIDE
     Dosage: STRENGTH: 10 MG
  3. LOPACUT [Concomitant]
     Dosage: STRENGTH: 2 MG
  4. SPASMEX [Concomitant]
     Dosage: STRENGTH: 5 MG
  5. LINOLA UREA [Concomitant]
  6. FLUOROURACIL ACCORD [Suspect]
     Active Substance: FLUOROURACIL
     Indication: CHOLANGIOCARCINOMA
     Dosage: STRENGTH: 50 MG / ML, 180 MG/M2, 400 MG I.V.
     Route: 042
     Dates: start: 20201022, end: 20201231

REACTIONS (4)
  - Off label use [Unknown]
  - Neutropenia [Recovered/Resolved]
  - Anaemia [Recovered/Resolved]
  - Leukopenia [Recovered/Resolved]

NARRATIVE: CASE EVENT DATE: 20201022
